FAERS Safety Report 12569556 (Version 1)
Quarter: 2016Q3

REPORT INFORMATION
  Report Type: Spontaneous
  Country: US (occurrence: None)
  Receive Date: 20160718
  Receipt Date: 20160718
  Transmission Date: 20161109
  Serious: Yes (Hospitalization)
  Sender: FDA-Public Use
  Company Number: None

PATIENT
  Age: 14 Year
  Sex: Female
  Weight: 84.5 kg

DRUGS (4)
  1. DAUNORUBICIN [Suspect]
     Active Substance: DAUNORUBICIN
     Dates: end: 20160706
  2. ONCASPAR [Suspect]
     Active Substance: PEGASPARGASE
     Dates: end: 20160625
  3. PREDNISONE. [Suspect]
     Active Substance: PREDNISONE
     Dates: end: 20160715
  4. VINCRISTINE SULFATE. [Suspect]
     Active Substance: VINCRISTINE SULFATE
     Dates: end: 20160706

REACTIONS (9)
  - Hepatic congestion [None]
  - Gamma-glutamyltransferase increased [None]
  - Blood bilirubin increased [None]
  - Condition aggravated [None]
  - Blood fibrinogen decreased [None]
  - Bilirubin conjugated increased [None]
  - Prothrombin time prolonged [None]
  - Activated partial thromboplastin time prolonged [None]
  - Catheter site discharge [None]

NARRATIVE: CASE EVENT DATE: 20160708
